FAERS Safety Report 8202540-6 (Version None)
Quarter: 2012Q1

REPORT INFORMATION
  Report Type: 
  Country: None (occurrence: None)
  Receive Date: 20120312
  Receipt Date: 20120228
  Transmission Date: 20120608
  Serious: Yes (Other)
  Sender: FDA-Public Use
  Company Number: US-JNJFOC-20120301034

PATIENT
  Age: 3 Year
  Sex: Male
  Weight: 13.61 kg

DRUGS (2)
  1. RISPERDAL [Suspect]
     Route: 048
     Dates: start: 20110101
  2. RISPERDAL [Suspect]
     Indication: ABNORMAL BEHAVIOUR
     Route: 048
     Dates: start: 20110101, end: 20110101

REACTIONS (18)
  - CATATONIA [None]
  - BODY TEMPERATURE INCREASED [None]
  - ADVERSE EVENT [None]
  - COORDINATION ABNORMAL [None]
  - LOSS OF CONSCIOUSNESS [None]
  - FEELING ABNORMAL [None]
  - TREATMENT NONCOMPLIANCE [None]
  - GAIT DISTURBANCE [None]
  - FALL [None]
  - WEIGHT INCREASED [None]
  - CONVULSION [None]
  - STUPOR [None]
  - UNRESPONSIVE TO STIMULI [None]
  - THIRST [None]
  - DRUG ADMINISTERED TO PATIENT OF INAPPROPRIATE AGE [None]
  - CLUMSINESS [None]
  - SLOW RESPONSE TO STIMULI [None]
  - SOMNOLENCE [None]
